FAERS Safety Report 7792892-3 (Version None)
Quarter: 2011Q4

REPORT INFORMATION
  Report Type: 
  Country: None (occurrence: None)
  Receive Date: 20111003
  Receipt Date: 20110919
  Transmission Date: 20120403
  Serious: Yes (Other)
  Sender: FDA-Public Use
  Company Number: PHEH2011US04534

PATIENT
  Age: 59 Year
  Sex: Male

DRUGS (4)
  1. MULTI-VITAMINS [Concomitant]
     Dosage: UNK UKN, UNK
  2. DIOVAN [Suspect]
     Dosage: 1 DF, QD (40 MG)
  3. VITAMIN D [Concomitant]
     Dosage: UNK UKN, UNK
  4. SIMVASTATIN [Concomitant]
     Dosage: UNK UKN, UNK

REACTIONS (2)
  - CHRONIC MYELOID LEUKAEMIA [None]
  - CHROMOSOME ANALYSIS ABNORMAL [None]
